FAERS Safety Report 16457394 (Version 1)
Quarter: 2019Q2

REPORT INFORMATION
  Report Type: Spontaneous
  Country: HK (occurrence: HK)
  Receive Date: 20190620
  Receipt Date: 20190620
  Transmission Date: 20190711
  Serious: Yes (Death, Hospitalization)
  Sender: FDA-Public Use
  Company Number: HK-PERRIGO-19HK007298

PATIENT
  Age: 29 Year
  Sex: Male

DRUGS (3)
  1. MORPHINE SULFATE. [Suspect]
     Active Substance: MORPHINE SULFATE
     Indication: PRODUCT USED FOR UNKNOWN INDICATION
     Dosage: UNK
     Route: 048
  2. CENTRALLY ACTING SYMPATHOMIMETICS (PARA-METHOXYMETHAMPHETAMINE) [Suspect]
     Active Substance: 4-METHOXYMETHAMPHETAMINE
     Indication: PRODUCT USED FOR UNKNOWN INDICATION
     Dosage: UNK
     Route: 048
  3. METHYLENEDIOXYMETHAMPHETAMINE [Suspect]
     Active Substance: MIDOMAFETAMINE
     Indication: PRODUCT USED FOR UNKNOWN INDICATION
     Dosage: UNK
     Route: 048

REACTIONS (8)
  - Ischaemic hepatitis [Not Recovered/Not Resolved]
  - Acute respiratory distress syndrome [Not Recovered/Not Resolved]
  - Seizure [Not Recovered/Not Resolved]
  - Brain injury [Not Recovered/Not Resolved]
  - Brain oedema [Not Recovered/Not Resolved]
  - Sepsis [Not Recovered/Not Resolved]
  - Cardiac arrest [Fatal]
  - Toxicity to various agents [Not Recovered/Not Resolved]
